FAERS Safety Report 8839581 (Version 1)
Quarter: 2012Q4

REPORT INFORMATION
  Report Type: Spontaneous
  Country: US (occurrence: None)
  Receive Date: 20121011
  Receipt Date: 20121011
  Transmission Date: 20130627
  Serious: Yes (Hospitalization)
  Sender: FDA-Public Use
  Company Number: None

PATIENT
  Age: 43 Year
  Sex: Female
  Weight: 109.32 kg

DRUGS (1)
  1. VIVELLE DOT [Suspect]
     Route: 062
     Dates: start: 20060101, end: 20120928

REACTIONS (1)
  - Cerebrovascular accident [None]
